FAERS Safety Report 5241432-1 (Version None)
Quarter: 2007Q1

REPORT INFORMATION
  Report Type: 
  Country: None (occurrence: None)
  Receive Date: 20070212
  Receipt Date: 20070212
  Transmission Date: 20070707
  Serious: No
  Sender: FDA-Public Use
  Company Number: None

PATIENT
  Age: 83 Year
  Sex: Male

DRUGS (1)
  1. PROTAMINE SULFATE [Suspect]

REACTIONS (5)
  - LUNG INFILTRATION [None]
  - PROCEDURAL HYPOTENSION [None]
  - PULMONARY HYPERTENSION [None]
  - PULMONARY OEDEMA [None]
  - TRANSFUSION-RELATED ACUTE LUNG INJURY [None]
